FAERS Safety Report 8484892-5 (Version None)
Quarter: 2012Q3

REPORT INFORMATION
  Report Type: 
  Country: None (occurrence: None)
  Receive Date: 20120703
  Receipt Date: 20120620
  Transmission Date: 20120928
  Serious: Yes (Hospitalization, Disabling, Other)
  Sender: FDA-Public Use
  Company Number: BD-ASTELLAS-2012US001415

PATIENT
  Age: 17 Year
  Sex: Female
  Weight: 46 kg

DRUGS (1)
  1. AMBISOME [Suspect]
     Indication: VISCERAL LEISHMANIASIS
     Dosage: 230 MG, UNKNOWN/D
     Route: 065
     Dates: start: 20111221

REACTIONS (2)
  - HYPOKALAEMIA [None]
  - RHABDOMYOLYSIS [None]
